FAERS Safety Report 5924322-8 (Version None)
Quarter: 2008Q4

REPORT INFORMATION
  Report Type: 
  Country: None (occurrence: None)
  Receive Date: 20081020
  Receipt Date: 20081010
  Transmission Date: 20090506
  Serious: Yes (Hospitalization, Other)
  Sender: FDA-Public Use
  Company Number: US-PFIZER INC-2008074894

PATIENT
  Sex: Female
  Weight: 54.4 kg

DRUGS (1)
  1. NORVASC [Suspect]

REACTIONS (1)
  - CARDIAC FAILURE CONGESTIVE [None]
